FAERS Safety Report 4568051-4 (Version None)
Quarter: 2005Q1

REPORT INFORMATION
  Report Type: 
  Country: None (occurrence: None)
  Receive Date: 20050202
  Receipt Date: 20040831
  Transmission Date: 20050727
  Serious: No
  Sender: FDA-Public Use
  Company Number: US-GLAXOSMITHKLINE-A0524085A

PATIENT
  Sex: Male

DRUGS (1)
  1. TABLOID [Suspect]
     Indication: ILL-DEFINED DISORDER
     Route: 048

REACTIONS (2)
  - ASTHENIA [None]
  - WHITE BLOOD CELL COUNT DECREASED [None]
